FAERS Safety Report 6995932-4 (Version None)
Quarter: 2010Q3

REPORT INFORMATION
  Report Type: 
  Country: None (occurrence: None)
  Receive Date: 20100918
  Receipt Date: 20081118
  Transmission Date: 20110219
  Serious: No
  Sender: FDA-Public Use
  Company Number: US-WYE-H06907608

PATIENT
  Age: 44 Year
  Sex: Female

DRUGS (2)
  1. EFFEXOR XR [Suspect]
     Indication: DEPRESSION
     Route: 048
     Dates: start: 20050101
  2. LISINOPRIL [Concomitant]

REACTIONS (4)
  - ANTISOCIAL BEHAVIOUR [None]
  - DRUG EFFECT DECREASED [None]
  - FATIGUE [None]
  - IRRITABILITY [None]
